FAERS Safety Report 5736364-6 (Version None)
Quarter: 2008Q2

REPORT INFORMATION
  Report Type: 
  Country: None (occurrence: None)
  Receive Date: 20080508
  Receipt Date: 20080428
  Transmission Date: 20081010
  Serious: Yes (Hospitalization)
  Sender: FDA-Public Use
  Company Number: FABR-1000163

PATIENT
  Age: 82 Year
  Sex: Male
  Weight: 68 kg

DRUGS (7)
  1. FABRAZYME [Suspect]
     Indication: FABRY'S DISEASE
     Dosage: 65 MG, Q2W, INTRAVENOUS ; 65 MG, Q2W, INTRAVENOUS
     Route: 042
     Dates: start: 20061026, end: 20080311
  2. FABRAZYME [Suspect]
     Indication: FABRY'S DISEASE
     Dosage: 65 MG, Q2W, INTRAVENOUS ; 65 MG, Q2W, INTRAVENOUS
     Route: 042
     Dates: start: 20080327
  3. ENALAPRIL MALEATE [Concomitant]
  4. FUROSEMIDE [Concomitant]
  5. SPIRONOLACTONE [Concomitant]
  6. CARBOCISTEINE (CARBOCISTEINE) [Concomitant]
  7. OXYGEN (OXYGEN) [Concomitant]

REACTIONS (2)
  - CARDIAC FAILURE CONGESTIVE [None]
  - DISEASE PROGRESSION [None]
